FAERS Safety Report 23431360 (Version 1)
Quarter: 2024Q1

REPORT INFORMATION
  Report Type: Spontaneous
  Country: DE (occurrence: DE)
  Receive Date: 20240123
  Receipt Date: 20240123
  Transmission Date: 20240410
  Serious: No
  Sender: FDA-Public Use
  Company Number: DE-ALKEM LABORATORIES LIMITED-DE-ALKEM-2023-16610

PATIENT
  Age: 23 Year
  Sex: Male
  Weight: 82 kg

DRUGS (4)
  1. FINGOLIMOD [Suspect]
     Active Substance: FINGOLIMOD
     Indication: Relapsing-remitting multiple sclerosis
     Dosage: 0.56 MILLIGRAM (TABLET)
     Route: 048
     Dates: start: 20200204
  2. Corminaty [Concomitant]
     Indication: COVID-19 immunisation
     Dosage: 0.3 MILLILITER (1 TOTAL)
     Route: 030
     Dates: start: 20210601, end: 20210601
  3. Corminaty [Concomitant]
     Dosage: 0.3 MILLILITER (1 TOTAL)
     Route: 030
     Dates: start: 20210714, end: 20210714
  4. Corminaty [Concomitant]
     Dosage: 0.3 MILLILITER
     Route: 030
     Dates: start: 20211220, end: 20211220

REACTIONS (1)
  - Lymphopenia [Recovered/Resolved]

NARRATIVE: CASE EVENT DATE: 20221130
